FAERS Safety Report 6499845-6 (Version None)
Quarter: 2009Q4

REPORT INFORMATION
  Report Type: 
  Country: None (occurrence: None)
  Receive Date: 20091214
  Receipt Date: 20091201
  Transmission Date: 20100525
  Serious: Yes (Death)
  Sender: FDA-Public Use
  Company Number: 024

PATIENT
  Age: 49 Year
  Sex: Male

DRUGS (1)
  1. FAZACLO 100 MG ODT AZUR PHARMA (FORMERLY ALAMO PHARMACEUTICALS) [Suspect]
     Indication: SCHIZOPHRENIA
     Dosage: 800 MG PO DAILY
     Route: 048
     Dates: start: 20050601, end: 20051113

REACTIONS (1)
  - LUNG CANCER METASTATIC [None]
